FAERS Safety Report 25968839 (Version 1)
Quarter: 2025Q4

REPORT INFORMATION
  Report Type: Spontaneous
  Country: US (occurrence: None)
  Receive Date: 20251027
  Receipt Date: 20251027
  Transmission Date: 20260118
  Serious: Yes (Death)
  Sender: FDA-CTU
  Company Number: None

PATIENT
  Age: 93 Year
  Sex: Female
  Weight: 36.29 kg

DRUGS (5)
  1. PROLIA [Suspect]
     Active Substance: DENOSUMAB
     Indication: Senile osteoporosis
     Dosage: 60 MG/ML : EVERY 6 MONTHS SUBCUTANEOUS?
     Route: 058
     Dates: start: 20240215, end: 20251027
  2. ANASTROZOLE [Concomitant]
     Active Substance: ANASTROZOLE
  3. CALCIUM [Concomitant]
     Active Substance: CALCIUM
  4. MAGNESIUM [Concomitant]
     Active Substance: MAGNESIUM
  5. VITAMIN D3 [Concomitant]
     Active Substance: CHOLECALCIFEROL

REACTIONS (1)
  - Death [None]

NARRATIVE: CASE EVENT DATE: 20251027
